FAERS Safety Report 5319099-3 (Version None)
Quarter: 2007Q2

REPORT INFORMATION
  Report Type: 
  Country: None (occurrence: None)
  Receive Date: 20070508
  Receipt Date: 20070503
  Transmission Date: 20071010
  Serious: Yes (Other)
  Sender: FDA-Public Use
  Company Number: A0646678A

PATIENT
  Age: 64 Year
  Sex: Female
  Weight: 71.4 kg

DRUGS (1)
  1. COREG [Suspect]
     Indication: DRUG USE FOR UNKNOWN INDICATION
     Dosage: 6.25MG UNKNOWN
     Route: 048
     Dates: start: 20070305, end: 20070306

REACTIONS (7)
  - BLOOD PRESSURE INCREASED [None]
  - DYSPNOEA [None]
  - HEART RATE INCREASED [None]
  - RESPIRATORY DISTRESS [None]
  - SKIN INFLAMMATION [None]
  - SKIN SWELLING [None]
  - THIRST [None]
